FAERS Safety Report 6394553 (Version 2)
Quarter: 2013Q1

REPORT INFORMATION
  Report Type: Spontaneous
  Country: US (occurrence: None)
  Receive Date: 20070822
  Receipt Date: 20130103
  Transmission Date: 20140127
  Serious: Yes (Other)
  Sender: FDA-Public Use
  Company Number: 2007US-09112

PATIENT
  Age: 38 Year
  Sex: Female

DRUGS (1)
  1. NITROFURANTOIN [Suspect]
     Indication: URINARY TRACT INFECTION

REACTIONS (20)
  - Muscle spasms [None]
  - Post viral fatigue syndrome [None]
  - Multiple sclerosis [None]
  - Hypertonic bladder [None]
  - Anosmia [None]
  - Myoclonus [None]
  - Tremor [None]
  - Pain in extremity [None]
  - Sexual dysfunction [None]
  - Vulval disorder [None]
  - Neuralgia [None]
  - Chest pain [None]
  - Maternal exposure during pregnancy [None]
  - Urinary tract infection [None]
  - Pregnancy [None]
  - Peripheral sensory neuropathy [None]
  - Pollakiuria [None]
  - Escherichia urinary tract infection [None]
  - Urinary tract infection enterococcal [None]
  - Toxicity to various agents [None]
